FAERS Safety Report 4505726-7 (Version None)
Quarter: 2004Q4

REPORT INFORMATION
  Report Type: 
  Country: None (occurrence: None)
  Receive Date: 20041025
  Receipt Date: 20040315
  Transmission Date: 20050328
  Serious: Yes (Hospitalization)
  Sender: FDA-Public Use
  Company Number: US-JNJFOC-20040103807

PATIENT
  Age: 48 Year
  Sex: Male
  Weight: 87.9978 kg

DRUGS (15)
  1. REMICADE [Suspect]
     Indication: RHEUMATOID ARTHRITIS
     Dosage: 300 MG, INTRAVENOUS
     Route: 042
     Dates: start: 20001206
  2. REMICADE [Suspect]
     Indication: INFLAMMATORY BOWEL DISEASE
     Dosage: 400 MG, INTRAVENOUS
     Route: 042
     Dates: start: 20010103
  3. REMICADE [Suspect]
     Dosage: 400 MG, INTRAVENOUS
     Route: 042
     Dates: start: 20010404
  4. REMICADE [Suspect]
     Dosage: 400 MG, INTRAVENOUS
     Route: 042
     Dates: start: 20010523
  5. REMICADE [Suspect]
     Dosage: 400 MG, INTRAVENOUS
     Route: 042
     Dates: start: 20011227
  6. REMICADE [Suspect]
     Dosage: 400 MG, INTRAVENOUS
     Route: 042
     Dates: start: 20020227
  7. REMICADE [Suspect]
     Dosage: 400 MG; INTRAVENOUS
     Route: 042
     Dates: start: 20020424
  8. REMICADE [Suspect]
     Dosage: 400 MG, INTRAVENOUS
     Route: 042
     Dates: start: 20020619
  9. REMICADE [Suspect]
     Dosage: 400 MG; INTRAVENOUS
     Route: 042
     Dates: start: 20020904
  10. REMICADE [Suspect]
     Dosage: 400 MG; INTRAVENOUS
     Route: 042
     Dates: start: 20021120
  11. REMICADE [Suspect]
     Dosage: 400 MG; INTRAVENOUS
     Route: 042
     Dates: start: 20030122
  12. REMICADE [Suspect]
     Dosage: 400 MG; INTRAVENOUS
     Route: 042
     Dates: start: 20030319
  13. REMICADE [Suspect]
     Dosage: 400 MG; INTRAVENOUS
     Route: 042
     Dates: start: 20040114
  14. IMURAN [Concomitant]
  15. PREDNISONE [Concomitant]

REACTIONS (5)
  - ANAPHYLACTIC REACTION [None]
  - DIABETES MELLITUS [None]
  - HYPERCHOLESTEROLAEMIA [None]
  - MEMORY IMPAIRMENT [None]
  - MYOCARDIAL INFARCTION [None]
